FAERS Safety Report 6999056-1 (Version None)
Quarter: 2010Q3

REPORT INFORMATION
  Report Type: 
  Country: None (occurrence: None)
  Receive Date: 20100920
  Receipt Date: 20100907
  Transmission Date: 20110219
  Serious: Yes (Life-Threatening, Other)
  Sender: FDA-Public Use
  Company Number: US-ELI_LILLY_AND_COMPANY-US201009003016

PATIENT
  Sex: Female

DRUGS (5)
  1. FORTEO [Suspect]
     Indication: OSTEOPOROSIS
     Dosage: 20 UG, DAILY (1/D)
  2. DARVOCET [Concomitant]
  3. BACLOFEN [Concomitant]
  4. SYNTHROID [Concomitant]
  5. TOPROL-XL [Concomitant]
     Indication: BLOOD PRESSURE INCREASED

REACTIONS (12)
  - ASTHENIA [None]
  - BACK PAIN [None]
  - COLLAPSE OF LUNG [None]
  - ENDOTRACHEAL INTUBATION [None]
  - LUNG DISORDER [None]
  - LUNG INFECTION [None]
  - MALAISE [None]
  - MUSCULOSKELETAL CHEST PAIN [None]
  - PLEURISY [None]
  - PNEUMONIA [None]
  - SMALL CELL LUNG CANCER STAGE UNSPECIFIED [None]
  - WHITE BLOOD CELL COUNT INCREASED [None]
